FAERS Safety Report 6236647-X (Version None)
Quarter: 2009Q2

REPORT INFORMATION
  Report Type: 
  Country: None (occurrence: None)
  Receive Date: 20090619
  Receipt Date: 20081114
  Transmission Date: 20091009
  Serious: No
  Sender: FDA-Public Use
  Company Number: US-ASTRAZENECA-2008UW25502

PATIENT
  Age: 53 Year
  Sex: Female
  Weight: 73.5 kg

DRUGS (8)
  1. ATACAND [Suspect]
     Indication: HYPERTENSION
     Dosage: 16 MG
     Route: 048
     Dates: start: 20020101
  2. ADVAIR HFA [Concomitant]
  3. ALBUTEROL SULFATE SOLUTION [Concomitant]
  4. BECONASE AQ [Concomitant]
  5. SPIRIVA [Concomitant]
  6. PROVENTIL GENTLEHALER [Concomitant]
  7. SINGULAIR [Concomitant]
  8. DETROL LA [Concomitant]

REACTIONS (2)
  - BLOOD PRESSURE INCREASED [None]
  - WEIGHT DECREASED [None]
